FAERS Safety Report 8008870-5 (Version None)
Quarter: 2011Q4

REPORT INFORMATION
  Report Type: 
  Country: None (occurrence: None)
  Receive Date: 20111227
  Receipt Date: 20111222
  Transmission Date: 20120403
  Serious: Yes (Hospitalization)
  Sender: FDA-Public Use
  Company Number: PHHO2011TW09929

PATIENT
  Sex: Male
  Weight: 65 kg

DRUGS (22)
  1. VALSARTAN [Suspect]
     Dosage: CODE NOT BROKEN
     Route: 048
     Dates: start: 20100619, end: 20100729
  2. AMBROXOL [Concomitant]
     Indication: ASTHMA
     Dosage: 30 MG, BID
     Route: 048
     Dates: start: 20100709, end: 20110919
  3. ASPIRIN [Concomitant]
     Indication: ANTIPLATELET THERAPY
     Dosage: 100 MG, QD
     Route: 048
     Dates: start: 20110121
  4. ISOSORBIDE MONONITRATE [Concomitant]
     Indication: ANGINA PECTORIS
     Dosage: 20 MG, UNK
     Route: 048
     Dates: start: 20100528
  5. VYTORIN [Concomitant]
  6. ACETAMINOPHEN [Concomitant]
  7. VALSARTAN [Suspect]
     Dosage: DOUBLE BLIND
     Route: 048
     Dates: start: 20100830, end: 20110919
  8. ENALAPRIL MALEATE [Suspect]
     Indication: CARDIAC FAILURE CHRONIC
     Dosage: CODE NOT BROKEN
     Route: 048
     Dates: start: 20100604, end: 20100617
  9. CEFATRIZINE [Concomitant]
  10. RANITIDINE [Concomitant]
     Indication: GASTROOESOPHAGEAL REFLUX DISEASE
     Dosage: 150 MG, QD
     Dates: start: 20060101
  11. CARVEDILOL [Concomitant]
     Indication: CARDIAC FAILURE CHRONIC
     Dosage: 25 MG, BID
     Route: 048
     Dates: start: 20100429
  12. BENZBROMARONE [Concomitant]
     Indication: HYPERURICAEMIA
     Dosage: 100 MG, QD
     Route: 048
     Dates: start: 20100816
  13. DICLOFENAC SODIUM [Concomitant]
  14. FUROSEMIDE [Suspect]
     Indication: CARDIAC FAILURE CHRONIC
     Dosage: 40 MG, BID
     Route: 048
     Dates: start: 20040101
  15. AMBROXOL [Concomitant]
     Indication: COUGH
  16. VALSARTAN [Suspect]
     Indication: CARDIAC FAILURE CHRONIC
     Dosage: 200 MG, UNK
     Route: 048
     Dates: start: 20100731, end: 20100821
  17. LIDOCAINE [Concomitant]
  18. CARVEDILOL [Concomitant]
     Indication: HYPERTENSION
     Dosage: 25 MG, QD
     Route: 048
     Dates: start: 20040101
  19. CLOPIDOGREL [Concomitant]
  20. FUROSEMIDE [Suspect]
     Dosage: 40 MG, QD
     Route: 048
     Dates: start: 20100528, end: 20110919
  21. COMBIVENT [Concomitant]
  22. TETANUS TOXOID [Concomitant]

REACTIONS (3)
  - HYPOVOLAEMIC SHOCK [None]
  - LEFT VENTRICULAR DYSFUNCTION [None]
  - RENAL FAILURE ACUTE [None]
